FAERS Safety Report 5009080-6 (Version None)
Quarter: 2006Q2

REPORT INFORMATION
  Report Type: 
  Country: None (occurrence: None)
  Receive Date: 20060517
  Receipt Date: 20060508
  Transmission Date: 20061013
  Serious: Yes (Hospitalization)
  Sender: FDA-Public Use
  Company Number: 2005106064

PATIENT
  Age: 43 Year
  Sex: Male

DRUGS (7)
  1. AMLODIPINE [Suspect]
     Indication: ILL-DEFINED DISORDER
     Dosage: 560 MG (10 MG), ORAL
     Route: 048
  2. FLUOXETINE HCL [Suspect]
     Indication: ILL-DEFINED DISORDER
     Dosage: 600 MG, ORAL
     Route: 048
  3. FOLIC ACID [Suspect]
     Indication: ILL-DEFINED DISORDER
     Dosage: 30 TABLETS, ORAL
     Route: 048
  4. ASPIRIN [Suspect]
     Indication: ILL-DEFINED DISORDER
     Dosage: 7.5 GRAM
  5. ACETAMINOPHEN [Suspect]
     Indication: ILL-DEFINED DISORDER
     Dosage: 16 GRAM
  6. CITALOPRAM HYDROBROMIDE [Suspect]
     Indication: ILL-DEFINED DISORDER
     Dosage: 280 MG, ORAL
     Route: 048
  7. PERINDOPRIL (PERNIDOPRIL) [Suspect]
     Indication: ILL-DEFINED DISORDER
     Dosage: 120 MG

REACTIONS (6)
  - BLOOD POTASSIUM DECREASED [None]
  - DEPRESSED LEVEL OF CONSCIOUSNESS [None]
  - FALL [None]
  - HAEMODYNAMIC INSTABILITY [None]
  - INCORRECT DOSE ADMINISTERED [None]
  - METABOLIC ACIDOSIS [None]
